FAERS Safety Report 11456285 (Version 1)
Quarter: 2015Q3

REPORT INFORMATION
  Report Type: Spontaneous
  Country: US (occurrence: US)
  Receive Date: 20150903
  Receipt Date: 20150903
  Transmission Date: 20151125
  Serious: Yes (Disabling)
  Sender: FDA-Public Use
  Company Number: US-BAYER-2015-409332

PATIENT
  Age: 67 Year
  Sex: Male

DRUGS (1)
  1. BETASERON [Suspect]
     Active Substance: INTERFERON BETA-1B
     Indication: RELAPSING-REMITTING MULTIPLE SCLEROSIS
     Dosage: 0.3 MG, QOD
     Route: 058
     Dates: start: 2003

REACTIONS (6)
  - Panic attack [None]
  - Anxiety [None]
  - Injection site pain [None]
  - Gait disturbance [None]
  - Pain in extremity [None]
  - Abdominal hernia [None]

NARRATIVE: CASE EVENT DATE: 201508
